FAERS Safety Report 18693476 (Version 1)
Quarter: 2021Q1

REPORT INFORMATION
  Report Type: Spontaneous
  Country: US (occurrence: US)
  Receive Date: 20210104
  Receipt Date: 20210104
  Transmission Date: 20210419
  Serious: Yes (Other)
  Sender: FDA-Public Use
  Company Number: US-DRREDDYS-USA/USA/20/0130610

PATIENT
  Age: 72 Year
  Sex: Female

DRUGS (1)
  1. RISPERIDONE. [Suspect]
     Active Substance: RISPERIDONE
     Indication: SCHIZOPHRENIA

REACTIONS (3)
  - Biliary dilatation [Unknown]
  - Bile duct stone [Unknown]
  - Cholangitis sclerosing [Recovering/Resolving]
